FAERS Safety Report 17599646 (Version 1)
Quarter: 2020Q1

REPORT INFORMATION
  Report Type: Spontaneous
  Country: GB (occurrence: GB)
  Receive Date: 20200330
  Receipt Date: 20200330
  Transmission Date: 20200409
  Serious: Yes (Other)
  Sender: FDA-Public Use
  Company Number: GB-BRISTOL-MYERS SQUIBB COMPANY-BMS-2020-024878

PATIENT
  Age: 58 Year

DRUGS (1)
  1. DASATINIB. [Suspect]
     Active Substance: DASATINIB
     Indication: CHRONIC MYELOID LEUKAEMIA
     Dosage: UNK
     Route: 065
     Dates: start: 201904, end: 201910

REACTIONS (4)
  - Malignant neoplasm progression [Unknown]
  - Drug ineffective [Unknown]
  - Cytogenetic analysis abnormal [Unknown]
  - Chronic myeloid leukaemia [Unknown]
